FAERS Safety Report 8499420-8 (Version None)
Quarter: 2012Q2

REPORT INFORMATION
  Report Type: 
  Country: None (occurrence: None)
  Receive Date: 20120619
  Receipt Date: 20120601
  Transmission Date: 20120825
  Serious: Yes (Other)
  Sender: FDA-Public Use
  Company Number: 2012031763

PATIENT
  Sex: Female
  Weight: 61.2356 kg

DRUGS (24)
  1. HIZENTRA [Suspect]
  2. HIZENTRA [Suspect]
  3. HIZENTRA [Suspect]
     Indication: HUMORAL IMMUNE DEFECT
     Dosage: 10 G 1X/WEEK, START DATE MAY-2011 SUBCUTANEOUS)
     Route: 058
     Dates: start: 20111104
  4. HIZENTRA [Suspect]
     Indication: HUMORAL IMMUNE DEFECT
     Dosage: 10 G 1X/WEEK, START DATE MAY-2011 SUBCUTANEOUS)
     Route: 058
     Dates: start: 20110901
  5. HIZENTRA [Suspect]
     Indication: HUMORAL IMMUNE DEFECT
     Dosage: 10 G 1X/WEEK, START DATE MAY-2011 SUBCUTANEOUS)
     Route: 058
     Dates: start: 20111214
  6. HIZENTRA [Suspect]
     Indication: HUMORAL IMMUNE DEFECT
     Dosage: 10 G 1X/WEEK, START DATE MAY-2011 SUBCUTANEOUS)
     Route: 058
     Dates: start: 20110511
  7. HIZENTRA [Suspect]
     Indication: HUMORAL IMMUNE DEFECT
     Dosage: 10 G 1X/WEEK, START DATE MAY-2011 SUBCUTANEOUS)
     Route: 058
     Dates: start: 20110804
  8. HIZENTRA [Suspect]
     Indication: HUMORAL IMMUNE DEFECT
     Dosage: 10 G 1X/WEEK, START DATE MAY-2011 SUBCUTANEOUS)
     Route: 058
     Dates: start: 20110929
  9. HIZENTRA [Suspect]
     Indication: HUMORAL IMMUNE DEFECT
     Dosage: 10 G 1X/WEEK, START DATE MAY-2011 SUBCUTANEOUS)
     Route: 058
     Dates: start: 20120417
  10. HIZENTRA [Suspect]
     Indication: HUMORAL IMMUNE DEFECT
     Dosage: 10 G 1X/WEEK, START DATE MAY-2011 SUBCUTANEOUS)
     Route: 058
     Dates: start: 20110705
  11. HIZENTRA [Suspect]
     Indication: HUMORAL IMMUNE DEFECT
     Dosage: 10 G 1X/WEEK, START DATE MAY-2011 SUBCUTANEOUS)
     Route: 058
     Dates: start: 20120119
  12. HIZENTRA [Suspect]
  13. HIZENTRA [Suspect]
  14. HIZENTRA [Suspect]
  15. HIZENTRA [Suspect]
  16. HIZENTRA [Suspect]
  17. HIZENTRA [Suspect]
  18. HIZENTRA [Suspect]
  19. HIZENTRA [Suspect]
  20. HIZENTRA [Suspect]
  21. HIZENTRA [Suspect]
  22. HIZENTRA [Suspect]
  23. HIZENTRA [Suspect]
  24. HIZENTRA [Suspect]

REACTIONS (2)
  - HERPES SIMPLEX SEROLOGY POSITIVE [None]
  - TRANSMISSION OF AN INFECTIOUS AGENT VIA A MEDICINAL PRODUCT [None]
